FAERS Safety Report 7235228-9 (Version None)
Quarter: 2011Q1

REPORT INFORMATION
  Report Type: 
  Country: None (occurrence: None)
  Receive Date: 20110107
  Receipt Date: 20110103
  Transmission Date: 20110831
  Serious: Yes (Hospitalization, Other)
  Sender: FDA-Public Use
  Company Number: 20109829

PATIENT
  Sex: Male

DRUGS (1)
  1. LIORESAL [Suspect]
     Indication: MUSCLE SPASTICITY
     Dosage: DAILY, INTRATHECAL
     Route: 037

REACTIONS (6)
  - DRUG WITHDRAWAL SYNDROME [None]
  - BODY TEMPERATURE INCREASED [None]
  - HYPERTONIA [None]
  - MUSCLE SPASTICITY [None]
  - PRODUCT QUALITY ISSUE [None]
  - IRRITABILITY [None]
